FAERS Safety Report 4802584-8 (Version None)
Quarter: 2005Q4

REPORT INFORMATION
  Report Type: 
  Country: None (occurrence: None)
  Receive Date: 20051018
  Receipt Date: 20050328
  Transmission Date: 20060501
  Serious: Yes (Other)
  Sender: FDA-Public Use
  Company Number: US-MERCK-0503USA04988

PATIENT
  Age: 54 Year
  Sex: Female
  Weight: 91 kg

DRUGS (5)
  1. VIOXX [Suspect]
     Indication: ARTHRALGIA
     Route: 048
     Dates: start: 20000401, end: 20020319
  2. VIOXX [Suspect]
     Indication: BACK PAIN
     Route: 048
     Dates: start: 20000401, end: 20020319
  3. CELEBREX [Concomitant]
     Route: 065
     Dates: start: 20020301
  4. MOTRIN [Concomitant]
     Indication: PAIN
     Route: 065
  5. PERCOCET [Concomitant]
     Route: 065

REACTIONS (6)
  - ARTHRALGIA [None]
  - CARDIAC DISORDER [None]
  - CHONDROMALACIA [None]
  - HYPERCHOLESTEROLAEMIA [None]
  - IRRITABLE BOWEL SYNDROME [None]
  - MYOCARDIAL INFARCTION [None]
